FAERS Safety Report 13447865 (Version 1)
Quarter: 2017Q2

REPORT INFORMATION
  Report Type: Spontaneous
  Country: US (occurrence: US)
  Receive Date: 20170417
  Receipt Date: 20170417
  Transmission Date: 20170830
  Serious: No
  Sender: FDA-Public Use
  Company Number: None

PATIENT
  Age: 78 Year
  Sex: Male
  Weight: 90.8 kg

DRUGS (2)
  1. TRIAMTERENE/HYDROCHLOROTHIAIZDE 25/37 [Suspect]
     Active Substance: HYDROCHLOROTHIAZIDE\TRIAMTERENE
     Indication: OEDEMA PERIPHERAL
     Dosage: 25/37.5MG DAILY ORAL
     Route: 048
     Dates: start: 20170310, end: 20170322
  2. TRIAMTERENE/HYDROCHLOROTHIAIZDE 25/37 [Suspect]
     Active Substance: HYDROCHLOROTHIAZIDE\TRIAMTERENE
     Indication: HYPERTENSION
     Dosage: 25/37.5MG DAILY ORAL
     Route: 048
     Dates: start: 20170310, end: 20170322

REACTIONS (2)
  - Rash erythematous [None]
  - Rash [None]

NARRATIVE: CASE EVENT DATE: 20170310
